FAERS Safety Report 23450114 (Version 2)
Quarter: 2024Q1

REPORT INFORMATION
  Report Type: Report from Study
  Country: CA (occurrence: CA)
  Receive Date: 20240129
  Receipt Date: 20240212
  Transmission Date: 20240410
  Serious: Yes (Death)
  Sender: FDA-Public Use
  Company Number: CA-BAYER-2024A014767

PATIENT
  Sex: Female

DRUGS (2)
  1. EYLEA [Suspect]
     Active Substance: AFLIBERCEPT
     Indication: Age-related macular degeneration
     Dosage: UNK, ONCE, SOLUTION FOR INJECTION , 40 MG/ML
     Dates: start: 20230320, end: 20230320
  2. EYLEA [Suspect]
     Active Substance: AFLIBERCEPT
     Dosage: UNK, ONCE, SOLUTION FOR INJECTION , 40 MG/ML
     Dates: start: 20230821, end: 20230821

REACTIONS (1)
  - Death [Fatal]

NARRATIVE: CASE EVENT DATE: 20231221
